FAERS Safety Report 25493214 (Version 2)
Quarter: 2025Q3

REPORT INFORMATION
  Report Type: Report from Study
  Country: US (occurrence: US)
  Receive Date: 20250630
  Receipt Date: 20250709
  Transmission Date: 20251020
  Serious: Yes (Other)
  Sender: EMD SERONO INC
  Company Number: US-Merck Healthcare KGaA-2025032593

PATIENT
  Age: 55 Year
  Sex: Female

DRUGS (6)
  1. MAVENCLAD [Suspect]
     Active Substance: CLADRIBINE
     Indication: Relapsing-remitting multiple sclerosis
     Dates: start: 20230524, end: 20230529
  2. MAVENCLAD [Suspect]
     Active Substance: CLADRIBINE
  3. MAVENCLAD [Suspect]
     Active Substance: CLADRIBINE
  4. MAVENCLAD [Suspect]
     Active Substance: CLADRIBINE
     Dates: start: 20241118, end: 20241122
  5. ESTRADIOL [Concomitant]
     Active Substance: ESTRADIOL
     Indication: Endometrial hyperplasia
     Dates: start: 202212
  6. PROGESTERONE [Concomitant]
     Active Substance: PROGESTERONE
     Indication: Multiple sclerosis
     Dates: start: 202212, end: 202405

REACTIONS (3)
  - Keratoacanthoma [Unknown]
  - White blood cell count decreased [Recovering/Resolving]
  - Lymphocyte count decreased [Recovering/Resolving]

NARRATIVE: CASE EVENT DATE: 20250225
